FAERS Safety Report 12778017 (Version 1)
Quarter: 2016Q3

REPORT INFORMATION
  Report Type: Spontaneous
  Country: US (occurrence: US)
  Receive Date: 20160925
  Receipt Date: 20160925
  Transmission Date: 20161109
  Serious: No
  Sender: FDA-Public Use
  Company Number: US-ASTRAZENECA-2016SE98020

PATIENT
  Sex: Female
  Weight: 72.1 kg

DRUGS (11)
  1. POTASSIUM [Concomitant]
     Active Substance: POTASSIUM
     Route: 048
     Dates: start: 1990
  2. VALSARTAN. [Concomitant]
     Active Substance: VALSARTAN
     Indication: BLOOD PRESSURE ABNORMAL
     Route: 048
     Dates: start: 201509
  3. XANAX [Concomitant]
     Active Substance: ALPRAZOLAM
     Indication: ANXIETY
     Dosage: 0.25MG UNKNOWN
     Route: 048
     Dates: start: 2014
  4. IGG INFUSION [Concomitant]
     Indication: IMMUNODEFICIENCY
     Dosage: TWICE A MONTH
     Route: 042
     Dates: start: 2012
  5. DILTIAZEM. [Concomitant]
     Active Substance: DILTIAZEM
     Indication: BLOOD PRESSURE ABNORMAL
     Route: 048
     Dates: start: 2010
  6. FUROSEMIDE. [Concomitant]
     Active Substance: FUROSEMIDE
     Indication: DIURETIC THERAPY
     Route: 048
     Dates: start: 2008
  7. ORENCIA [Concomitant]
     Active Substance: ABATACEPT
     Indication: RHEUMATOID ARTHRITIS
     Dosage: MONTHLY
     Route: 042
     Dates: start: 201512
  8. METHOTREXATE. [Concomitant]
     Active Substance: METHOTREXATE
     Indication: RHEUMATOID ARTHRITIS
     Route: 048
     Dates: start: 2014
  9. CARVEDILOL. [Concomitant]
     Active Substance: CARVEDILOL
     Indication: BLOOD PRESSURE ABNORMAL
     Route: 048
     Dates: start: 201509
  10. SYMBICORT [Suspect]
     Active Substance: BUDESONIDE\FORMOTEROL FUMARATE DIHYDRATE
     Indication: CHRONIC OBSTRUCTIVE PULMONARY DISEASE
     Dosage: 160/4.5MCG, 2 PUFFS TWICE DAILY
     Route: 055
     Dates: start: 2016
  11. SYMBICORT [Suspect]
     Active Substance: BUDESONIDE\FORMOTEROL FUMARATE DIHYDRATE
     Indication: ASTHMA
     Dosage: 160/4.5MCG, 2 PUFFS TWICE DAILY
     Route: 055
     Dates: start: 2016

REACTIONS (5)
  - Product quality issue [Unknown]
  - Dyspnoea [Unknown]
  - Anxiety [Unknown]
  - Panic disorder [Unknown]
  - Drug ineffective [Unknown]
